FAERS Safety Report 8817974 (Version 1)
Quarter: 2012Q4

REPORT INFORMATION
  Report Type: 
  Country: US (occurrence: US)
  Receive Date: 20121001
  Receipt Date: 20121001
  Transmission Date: 20130627
  Serious: No
  Sender: FDA-Public Use
  Company Number: US-SANOFI-AVENTIS-2012SA012889

PATIENT
  Sex: Female

DRUGS (1)
  1. ELIGARD [Suspect]
     Route: 065
     Dates: start: 20120223, end: 20120223

REACTIONS (2)
  - Injury associated with device [Recovered/Resolved]
  - Product quality issue [Unknown]
